FAERS Safety Report 11148416 (Version 2)
Quarter: 2015Q4

REPORT INFORMATION
  Report Type: Spontaneous
  Country: US (occurrence: US)
  Receive Date: 20150529
  Receipt Date: 20151223
  Transmission Date: 20160304
  Serious: Yes (Other)
  Sender: FDA-Public Use
  Company Number: US-ASTRAZENECA-2013SE89126

PATIENT
  Age: 20175 Day
  Sex: Female
  Weight: 109.7 kg

DRUGS (22)
  1. CRESTOR [Concomitant]
     Active Substance: ROSUVASTATIN CALCIUM
     Dates: start: 20081111
  2. GLYBURIDE. [Concomitant]
     Active Substance: GLYBURIDE
     Dates: start: 20030521
  3. METFORMIN HYDROCHLORIDE. [Concomitant]
     Active Substance: METFORMIN HYDROCHLORIDE
     Dates: start: 20030521
  4. DIOVAN [Concomitant]
     Active Substance: VALSARTAN
     Dates: start: 20070313
  5. NEURONTIN [Concomitant]
     Active Substance: GABAPENTIN
  6. ENALAPRIL MALEATE. [Concomitant]
     Active Substance: ENALAPRIL MALEATE
     Dates: start: 20031219
  7. MEBENDAZOLE. [Concomitant]
     Active Substance: MEBENDAZOLE
     Dates: start: 20060308
  8. ACTOS [Concomitant]
     Active Substance: PIOGLITAZONE HYDROCHLORIDE
     Dates: start: 20060403
  9. BYETTA [Suspect]
     Active Substance: EXENATIDE
     Indication: TYPE 2 DIABETES MELLITUS
     Route: 065
     Dates: start: 200609, end: 200806
  10. BENZONATATE. [Concomitant]
     Active Substance: BENZONATATE
     Dates: start: 20031215
  11. NORVASC [Concomitant]
     Active Substance: AMLODIPINE BESYLATE
     Dates: start: 20060308
  12. HUMALOG [Concomitant]
     Active Substance: INSULIN LISPRO
  13. IBUPROFEN. [Concomitant]
     Active Substance: IBUPROFEN
     Dates: start: 20030423
  14. PLETAL [Concomitant]
     Active Substance: CILOSTAZOL
     Dates: start: 20040903
  15. AMITRIPTYLINE HYDROCHLORIDE. [Concomitant]
     Active Substance: AMITRIPTYLINE HYDROCHLORIDE
     Dates: start: 20081111
  16. SYNTHROID [Concomitant]
     Active Substance: LEVOTHYROXINE SODIUM
  17. BYETTA [Suspect]
     Active Substance: EXENATIDE
     Indication: TYPE 2 DIABETES MELLITUS
     Dosage: 10 MCG/0.04 ML, TWO TIMES A DAY
     Route: 065
     Dates: start: 20060613
  18. BYETTA [Suspect]
     Active Substance: EXENATIDE
     Indication: TYPE 2 DIABETES MELLITUS
     Route: 065
     Dates: start: 20090717
  19. LIPITOR [Concomitant]
     Active Substance: ATORVASTATIN CALCIUM
     Dates: start: 20030423
  20. CEPHALEXIN. [Concomitant]
     Active Substance: CEPHALEXIN
     Dates: start: 20041207
  21. BIAXIN [Concomitant]
     Active Substance: CLARITHROMYCIN
     Dates: start: 20060331
  22. ACETAMINOPHEN. [Concomitant]
     Active Substance: ACETAMINOPHEN
     Dates: start: 20050826

REACTIONS (4)
  - Pulmonary mass [Unknown]
  - Post procedural hypothyroidism [Unknown]
  - Papillary thyroid cancer [Unknown]
  - Metastases to lymph nodes [Unknown]

NARRATIVE: CASE EVENT DATE: 20101209
